FAERS Safety Report 20165112 (Version 1)
Quarter: 2021Q4

REPORT INFORMATION
  Report Type: Spontaneous
  Country: US (occurrence: None)
  Receive Date: 20211208
  Receipt Date: 20211208
  Transmission Date: 20220303
  Serious: Yes (Life-Threatening, Hospitalization)
  Sender: FDA-Public Use
  Company Number: None

PATIENT
  Age: 70 Year
  Sex: Male
  Weight: 113 kg

DRUGS (1)
  1. DULAGLUTIDE [Suspect]
     Active Substance: DULAGLUTIDE
     Indication: Diabetes mellitus
     Dates: start: 20181121, end: 20210205

REACTIONS (1)
  - Neuroendocrine tumour [None]

NARRATIVE: CASE EVENT DATE: 20200527
